FAERS Safety Report 11651215 (Version 1)
Quarter: 2015Q4

REPORT INFORMATION
  Report Type: Spontaneous
  Country: FR (occurrence: FR)
  Receive Date: 20151021
  Receipt Date: 20151021
  Transmission Date: 20160304
  Serious: Yes (Other)
  Sender: FDA-Public Use
  Company Number: FR-ROCHE-1648974

PATIENT
  Sex: Male

DRUGS (6)
  1. LUCENTIS [Suspect]
     Active Substance: RANIBIZUMAB
     Dosage: 10 MG/ML   QMO
     Route: 050
     Dates: start: 201509
  2. LUCENTIS [Suspect]
     Active Substance: RANIBIZUMAB
     Indication: AGE-RELATED MACULAR DEGENERATION
     Dosage: 10 MG/ML   QMO (ONE EYE)
     Route: 050
     Dates: start: 2013
  3. LUCENTIS [Suspect]
     Active Substance: RANIBIZUMAB
     Dosage: 10 MG/ML   QMO
     Route: 050
     Dates: start: 201508
  4. LUCENTIS [Suspect]
     Active Substance: RANIBIZUMAB
     Dosage: 10 MG/ML   QMO (BOTH EYE)
     Route: 050
     Dates: start: 201402
  5. TAMSULOSINE [Concomitant]
     Active Substance: TAMSULOSIN HYDROCHLORIDE
  6. AVODART [Concomitant]
     Active Substance: DUTASTERIDE

REACTIONS (2)
  - Headache [Recovered/Resolved]
  - Blood pressure systolic [Recovered/Resolved]
